FAERS Safety Report 22010585 (Version 1)
Quarter: 2023Q1

REPORT INFORMATION
  Report Type: Spontaneous
  Country: US (occurrence: US)
  Receive Date: 20230220
  Receipt Date: 20230220
  Transmission Date: 20230418
  Serious: No
  Sender: FDA-Public Use
  Company Number: US-PERRIGO-22US007782

PATIENT
  Age: 62 Year
  Sex: Female

DRUGS (9)
  1. NAPROXEN SODIUM [Suspect]
     Active Substance: NAPROXEN SODIUM
     Indication: Arthralgia
     Dosage: 440 MG FOR FIRST DOSE, FOLLOWED BY 220 MG 8 HOURS LATER
     Route: 048
     Dates: start: 20220523, end: 20220525
  2. TYLENOL [Concomitant]
     Active Substance: ACETAMINOPHEN
     Indication: Supplementation therapy
     Dosage: UNK
     Route: 065
     Dates: start: 2020
  3. IBUPROFEN [Concomitant]
     Active Substance: IBUPROFEN
     Indication: Supplementation therapy
     Dosage: UNK
     Route: 065
     Dates: start: 2018
  4. VITAMIN D NOS [Concomitant]
     Active Substance: VITAMIN D NOS
     Indication: Supplementation therapy
     Dosage: UNK
     Route: 065
     Dates: start: 202112
  5. OMEPRAZOLE [Concomitant]
     Active Substance: OMEPRAZOLE
     Indication: Gastric disorder
     Dosage: UNK
     Route: 065
     Dates: start: 2021
  6. PRAVASTATIN [Concomitant]
     Active Substance: PRAVASTATIN
     Indication: Hyperlipidaemia
     Dosage: UNK
     Route: 065
     Dates: start: 2021
  7. LYRICA [Concomitant]
     Active Substance: PREGABALIN
     Indication: Fibromyalgia
     Dosage: UNK
     Route: 065
     Dates: start: 2021
  8. LISINOPRIL [Concomitant]
     Active Substance: LISINOPRIL
     Indication: Hypertension
     Dosage: UNK
     Route: 065
     Dates: start: 2018
  9. FOLIC ACID [Concomitant]
     Active Substance: FOLIC ACID
     Indication: Supplementation therapy
     Dosage: UNK
     Route: 065
     Dates: start: 20220520

REACTIONS (2)
  - Product after taste [Recovered/Resolved]
  - Paraesthesia oral [Recovered/Resolved]

NARRATIVE: CASE EVENT DATE: 20220523
